FAERS Safety Report 14046220 (Version 2)
Quarter: 2018Q2

REPORT INFORMATION
  Report Type: Spontaneous
  Country: FR (occurrence: FR)
  Receive Date: 20171005
  Receipt Date: 20180410
  Transmission Date: 20180711
  Serious: Yes (Other)
  Sender: FDA-Public Use
  Company Number: FR-MERCK KGAA-2028877

PATIENT
  Age: 59 Year
  Sex: Female
  Weight: 58 kg

DRUGS (1)
  1. NOVOTHYROX [Suspect]
     Active Substance: LEVOTHYROXINE SODIUM
     Indication: HYPOTHYROIDISM
     Route: 048
     Dates: start: 20170501, end: 20170730

REACTIONS (22)
  - Malaise [Unknown]
  - Headache [Not Recovered/Not Resolved]
  - Alopecia [Not Recovered/Not Resolved]
  - Balance disorder [Not Recovered/Not Resolved]
  - Muscle atrophy [Unknown]
  - Insomnia [Unknown]
  - Pain [Unknown]
  - Muscle spasms [Not Recovered/Not Resolved]
  - Fatigue [Unknown]
  - Impatience [Not Recovered/Not Resolved]
  - Hypotension [Not Recovered/Not Resolved]
  - Irritability [Unknown]
  - Product formulation issue [Not Recovered/Not Resolved]
  - Social avoidant behaviour [Unknown]
  - Migraine [Unknown]
  - Hot flush [Not Recovered/Not Resolved]
  - Blood thyroid stimulating hormone increased [Not Recovered/Not Resolved]
  - Blood pressure decreased [Unknown]
  - Blood thyroid stimulating hormone abnormal [Not Recovered/Not Resolved]
  - Mental fatigue [Unknown]
  - Weight decreased [Not Recovered/Not Resolved]
  - Thyroxine free decreased [Unknown]

NARRATIVE: CASE EVENT DATE: 20170510
